FAERS Safety Report 5552034-1 (Version None)
Quarter: 2007Q4

REPORT INFORMATION
  Report Type: 
  Country: None (occurrence: None)
  Receive Date: 20071212
  Receipt Date: 20071130
  Transmission Date: 20080405
  Serious: Yes (Other)
  Sender: FDA-Public Use
  Company Number: US-PFIZER INC-2007102523

PATIENT
  Sex: Male
  Weight: 90.909 kg

DRUGS (2)
  1. CHANTIX [Suspect]
     Indication: SMOKING CESSATION THERAPY
     Route: 048
     Dates: start: 20070101, end: 20071130
  2. ALL OTHER THERAPEUTIC PRODUCTS [Suspect]
     Indication: ANAESTHESIA

REACTIONS (4)
  - AGGRESSION [None]
  - HEART RATE INCREASED [None]
  - NIGHTMARE [None]
  - WISDOM TEETH REMOVAL [None]
